FAERS Safety Report 7284745-4 (Version None)
Quarter: 2011Q1

REPORT INFORMATION
  Report Type: 
  Country: None (occurrence: None)
  Receive Date: 20110210
  Receipt Date: 20110128
  Transmission Date: 20110831
  Serious: Yes (Hospitalization, Other)
  Sender: FDA-Public Use
  Company Number: 2007BI021528

PATIENT
  Sex: Female
  Weight: 74 kg

DRUGS (2)
  1. AMPYRA [Concomitant]
  2. TYSABRI [Suspect]
     Indication: MULTIPLE SCLEROSIS
     Route: 042
     Dates: start: 20070901, end: 20101201

REACTIONS (12)
  - MYALGIA [None]
  - INSOMNIA [None]
  - MUSCLE SPASMS [None]
  - DYSSTASIA [None]
  - URINARY TRACT INFECTION [None]
  - URTICARIA [None]
  - FLUSHING [None]
  - FATIGUE [None]
  - BURNING SENSATION [None]
  - HYPOTONIA [None]
  - HEADACHE [None]
  - PARAESTHESIA [None]
